FAERS Safety Report 10365256 (Version 4)
Quarter: 2014Q3

REPORT INFORMATION
  Report Type: Spontaneous
  Country: US (occurrence: US)
  Receive Date: 20140806
  Receipt Date: 20140925
  Transmission Date: 20150326
  Serious: Yes (Other)
  Sender: FDA-Public Use
  Company Number: US-PFIZER INC-2014214975

PATIENT
  Age: 57 Year
  Sex: Male

DRUGS (1)
  1. INLYTA [Suspect]
     Active Substance: AXITINIB
     Indication: RENAL CANCER
     Dosage: 1 MG, 2X/DAY (TITRATE UP TO 5 MG IN 1 MG INCREMENTS BID)
     Route: 048
     Dates: start: 201404, end: 20140731

REACTIONS (14)
  - Hypothyroidism [Recovered/Resolved]
  - Night sweats [Recovered/Resolved]
  - Anxiety [Unknown]
  - Disease progression [Unknown]
  - Renal cancer [Unknown]
  - Mood swings [Unknown]
  - Fall [Unknown]
  - Asthenia [Recovered/Resolved]
  - Circulatory collapse [Recovered/Resolved]
  - Abdominal pain [Recovering/Resolving]
  - Dizziness [Unknown]
  - Abdominal pain upper [Unknown]
  - Weight decreased [Unknown]
  - Cold sweat [Unknown]

NARRATIVE: CASE EVENT DATE: 2014
